FAERS Safety Report 5018713-X (Version None)
Quarter: 2006Q2

REPORT INFORMATION
  Report Type: 
  Country: None (occurrence: None)
  Receive Date: 20060606
  Receipt Date: 20060316
  Transmission Date: 20061013
  Serious: Yes (Hospitalization)
  Sender: FDA-Public Use
  Company Number: FR-ROCHE-440437

PATIENT
  Age: 36 Year
  Sex: Female
  Weight: 41 kg

DRUGS (6)
  1. ZENAPAX [Suspect]
     Route: 042
     Dates: start: 20050706, end: 20050706
  2. ZENAPAX [Suspect]
     Route: 042
     Dates: start: 20050720, end: 20050720
  3. MYCOPHENOLATE MOFETIL [Suspect]
     Route: 048
     Dates: start: 20050706
  4. SIROLIMUS [Suspect]
     Route: 048
     Dates: start: 20051003
  5. CYCLOSPORINE [Suspect]
     Route: 048
     Dates: start: 20050709
  6. CORTANCYL [Suspect]
     Route: 048
     Dates: start: 20050705

REACTIONS (5)
  - ENTEROCOCCAL INFECTION [None]
  - GRAFT COMPLICATION [None]
  - MORGANELLA INFECTION [None]
  - PYELONEPHRITIS [None]
  - URINARY TRACT INFECTION [None]
